FAERS Safety Report 4440369-5 (Version None)
Quarter: 2004Q3

REPORT INFORMATION
  Report Type: 
  Country: None (occurrence: None)
  Receive Date: 20040901
  Receipt Date: 20040901
  Transmission Date: 20050211
  Serious: No
  Sender: FDA-Public Use
  Company Number: None

PATIENT
  Age: 26 Year
  Sex: Male

DRUGS (4)
  1. RISPERIDONE [Suspect]
     Dosage: 25 MG Q 2 WEEKS IM
     Route: 042
  2. LITHIUM [Concomitant]
  3. PERPHENAZINE [Concomitant]
  4. BENZTROPINE MESYLATE [Concomitant]

REACTIONS (1)
  - LIVER FUNCTION TEST ABNORMAL [None]
